FAERS Safety Report 18143410 (Version 2)
Quarter: 2020Q4

REPORT INFORMATION
  Report Type: Spontaneous
  Country: US (occurrence: US)
  Receive Date: 20200813
  Receipt Date: 20201215
  Transmission Date: 20210113
  Serious: Yes (Hospitalization, Other)
  Sender: FDA-Public Use
  Company Number: US-ASTRAZENECA-2020SE98824

PATIENT
  Age: 813 Month
  Sex: Female
  Weight: 98 kg

DRUGS (47)
  1. NEXIUM [Suspect]
     Active Substance: ESOMEPRAZOLE MAGNESIUM
     Indication: GASTROOESOPHAGEAL REFLUX DISEASE
     Route: 048
     Dates: start: 201508, end: 201602
  2. NEXIUM [Suspect]
     Active Substance: ESOMEPRAZOLE MAGNESIUM
     Indication: GASTROOESOPHAGEAL REFLUX DISEASE
     Dosage: GENERIC
     Route: 065
     Dates: start: 201603, end: 201605
  3. OMEPRAZOLE. [Suspect]
     Active Substance: OMEPRAZOLE
     Indication: GASTROOESOPHAGEAL REFLUX DISEASE
     Dosage: GENERIC
     Route: 065
     Dates: start: 201002, end: 201003
  4. OMEPRAZOLE. [Suspect]
     Active Substance: OMEPRAZOLE
     Indication: GASTROOESOPHAGEAL REFLUX DISEASE
     Dosage: GENERIC
     Route: 065
     Dates: start: 20100210
  5. KLONOPIN [Concomitant]
     Active Substance: CLONAZEPAM
     Indication: DEPRESSION
     Dates: start: 2017
  6. ERYTHROMYCIN. [Concomitant]
     Active Substance: ERYTHROMYCIN
  7. LORATADINE. [Concomitant]
     Active Substance: LORATADINE
  8. TRAZODONE [Concomitant]
     Active Substance: TRAZODONE HYDROCHLORIDE
  9. NEXIUM [Suspect]
     Active Substance: ESOMEPRAZOLE MAGNESIUM
     Indication: GASTROOESOPHAGEAL REFLUX DISEASE
     Route: 048
     Dates: start: 2012, end: 2016
  10. LOTRISONE [Concomitant]
     Active Substance: BETAMETHASONE DIPROPIONATE\CLOTRIMAZOLE
  11. OXYCODONE [Concomitant]
     Active Substance: OXYCODONE
  12. CLOTRIMAZOLE. [Concomitant]
     Active Substance: CLOTRIMAZOLE
  13. TIZANIDINE. [Concomitant]
     Active Substance: TIZANIDINE
  14. CLONIDINE. [Concomitant]
     Active Substance: CLONIDINE
     Indication: HYPERTENSION
     Dates: start: 199901
  15. HYDROCODONE [Concomitant]
     Active Substance: HYDROCODONE
  16. FLUTICASONE. [Concomitant]
     Active Substance: FLUTICASONE
  17. WARFARIN [Concomitant]
     Active Substance: WARFARIN
  18. QUETIAPINE. [Concomitant]
     Active Substance: QUETIAPINE
  19. BUSPIRONE [Concomitant]
     Active Substance: BUSPIRONE HYDROCHLORIDE
  20. DICYCLOMINE [Concomitant]
     Active Substance: DICYCLOMINE HYDROCHLORIDE
  21. SUCRALFATE. [Concomitant]
     Active Substance: SUCRALFATE
  22. BENZONATATE. [Concomitant]
     Active Substance: BENZONATATE
  23. NEXIUM [Suspect]
     Active Substance: ESOMEPRAZOLE MAGNESIUM
     Indication: GASTROOESOPHAGEAL REFLUX DISEASE
     Route: 048
     Dates: start: 2009, end: 2019
  24. OMEPRAZOLE. [Suspect]
     Active Substance: OMEPRAZOLE
     Indication: GASTROOESOPHAGEAL REFLUX DISEASE
     Dosage: GENERIC
     Route: 065
     Dates: start: 201003
  25. NORCO [Concomitant]
     Active Substance: ACETAMINOPHEN\HYDROCODONE BITARTRATE
     Indication: PAIN
     Dates: start: 199901
  26. HYDROCHLOROTHIAZIDE. [Concomitant]
     Active Substance: HYDROCHLOROTHIAZIDE
     Indication: HYPERTENSION
     Dates: start: 2000
  27. GABAPENTIN. [Concomitant]
     Active Substance: GABAPENTIN
  28. CYANOCOBALAMIN. [Concomitant]
     Active Substance: CYANOCOBALAMIN
  29. NEXIUM [Suspect]
     Active Substance: ESOMEPRAZOLE MAGNESIUM
     Indication: GASTROOESOPHAGEAL REFLUX DISEASE
     Route: 048
     Dates: start: 201201, end: 201305
  30. NEXIUM [Suspect]
     Active Substance: ESOMEPRAZOLE MAGNESIUM
     Indication: GASTROOESOPHAGEAL REFLUX DISEASE
     Route: 048
     Dates: start: 201408, end: 201410
  31. FUROSEMIDE. [Concomitant]
     Active Substance: FUROSEMIDE
  32. PREDNISONE. [Concomitant]
     Active Substance: PREDNISONE
  33. ORPHENADRINE [Concomitant]
     Active Substance: ORPHENADRINE
  34. NEXIUM [Suspect]
     Active Substance: ESOMEPRAZOLE MAGNESIUM
     Indication: GASTROOESOPHAGEAL REFLUX DISEASE
     Route: 048
     Dates: start: 201410, end: 201508
  35. NEXIUM [Suspect]
     Active Substance: ESOMEPRAZOLE MAGNESIUM
     Indication: GASTROOESOPHAGEAL REFLUX DISEASE
     Route: 048
     Dates: start: 20120105
  36. LYRICA [Concomitant]
     Active Substance: PREGABALIN
     Indication: FIBROMYALGIA
     Dates: start: 201108
  37. RANITIDINE. [Concomitant]
     Active Substance: RANITIDINE
     Dates: start: 201002, end: 201003
  38. MECLIZINE [Concomitant]
     Active Substance: MECLIZINE HYDROCHLORIDE
  39. ATENOLOL. [Concomitant]
     Active Substance: ATENOLOL
  40. NASONEX [Concomitant]
     Active Substance: MOMETASONE FUROATE
  41. NEXIUM [Suspect]
     Active Substance: ESOMEPRAZOLE MAGNESIUM
     Indication: GASTROOESOPHAGEAL REFLUX DISEASE
     Route: 048
     Dates: start: 201305, end: 201408
  42. VICOPROFEN [Concomitant]
     Active Substance: HYDROCODONE BITARTRATE\IBUPROFEN
  43. MELOXICAM. [Concomitant]
     Active Substance: MELOXICAM
  44. COLCHICINE. [Concomitant]
     Active Substance: COLCHICINE
  45. MONTELUKAST [Concomitant]
     Active Substance: MONTELUKAST SODIUM
  46. IBUPROFEN. [Concomitant]
     Active Substance: IBUPROFEN
  47. CYANOCOB [Concomitant]

REACTIONS (1)
  - Chronic kidney disease [Not Recovered/Not Resolved]

NARRATIVE: CASE EVENT DATE: 201801
